FAERS Safety Report 8193855-9 (Version None)
Quarter: 2012Q1

REPORT INFORMATION
  Report Type: 
  Country: None (occurrence: None)
  Receive Date: 20120308
  Receipt Date: 20120301
  Transmission Date: 20120608
  Serious: Yes (Hospitalization)
  Sender: FDA-Public Use
  Company Number: NZ-B.I. PHARMACEUTICALS,INC./RIDGEFIELD-2011-AU-01460AU

PATIENT
  Sex: Female
  Weight: 70 kg

DRUGS (4)
  1. PRADAXA [Suspect]
     Dosage: 300 MG
     Route: 048
     Dates: start: 20110714, end: 20110821
  2. RANITIDINE [Concomitant]
  3. CARBIMAZOLE [Concomitant]
  4. PROPRANOLOL [Concomitant]

REACTIONS (2)
  - HAEMARTHROSIS [None]
  - MYOCARDIAL INFARCTION [None]
